FAERS Safety Report 18377941 (Version 1)
Quarter: 2020Q4

REPORT INFORMATION
  Report Type: Spontaneous
  Country: US (occurrence: US)
  Receive Date: 20201013
  Receipt Date: 20201013
  Transmission Date: 20210114
  Serious: No
  Sender: FDA-Public Use
  Company Number: US-SA-2020SA282874

PATIENT

DRUGS (2)
  1. FABRAZYME [Suspect]
     Active Substance: AGALSIDASE BETA
     Dosage: INCREASED DOSE
     Route: 065
  2. FABRAZYME [Suspect]
     Active Substance: AGALSIDASE BETA
     Dosage: 60 MG
     Route: 065

REACTIONS (2)
  - Weight decreased [Unknown]
  - Ill-defined disorder [Unknown]
